FAERS Safety Report 20819187 (Version 1)
Quarter: 2022Q2

REPORT INFORMATION
  Report Type: Spontaneous
  Country: US (occurrence: US)
  Receive Date: 20220512
  Receipt Date: 20220512
  Transmission Date: 20220721
  Serious: Yes (Other)
  Sender: FDA-Public Use
  Company Number: US-SANOFI-01089340

PATIENT
  Age: 19 Year
  Sex: Female

DRUGS (1)
  1. FERRLECIT [Suspect]
     Active Substance: SODIUM FERRIC GLUCONATE COMPLEX
     Indication: Iron deficiency
     Dosage: 125 MG, TOTAL
     Dates: start: 20220502, end: 20220502

REACTIONS (7)
  - Syncope [Recovering/Resolving]
  - Circulatory collapse [Recovering/Resolving]
  - Hypersensitivity [Recovering/Resolving]
  - Swelling [Recovering/Resolving]
  - Dizziness [Recovering/Resolving]
  - Nausea [Recovering/Resolving]
  - Dyspnoea [Recovering/Resolving]

NARRATIVE: CASE EVENT DATE: 20220502
